FAERS Safety Report 9311287 (Version 4)
Quarter: 2015Q3

REPORT INFORMATION
  Report Type: Report from Study
  Country: US (occurrence: US)
  Receive Date: 20130528
  Receipt Date: 20150804
  Transmission Date: 20151125
  Serious: Yes (Other)
  Sender: FDA-Public Use
  Company Number: US-ASTELLAS-2013US005462

PATIENT

DRUGS (2)
  1. INVESTIGATIONAL DRUG [Suspect]
     Active Substance: INVESTIGATIONAL PRODUCT
     Indication: LUNG NEOPLASM MALIGNANT
     Route: 042
  2. ERLOTINIB [Suspect]
     Active Substance: ERLOTINIB
     Indication: LUNG NEOPLASM MALIGNANT
     Dosage: 150 MG, DAILY IN 28 DAY CYCLE
     Route: 048

REACTIONS (11)
  - Liver function test abnormal [Unknown]
  - Anaemia [Unknown]
  - Diarrhoea [Unknown]
  - Hyponatraemia [Unknown]
  - White blood cell count decreased [Unknown]
  - Constipation [Unknown]
  - Large intestinal ulcer [Unknown]
  - Night blindness [Unknown]
  - Fatigue [Unknown]
  - Cardiac disorder [Unknown]
  - Lymphopenia [Unknown]
